FAERS Safety Report 23816318 (Version 1)
Quarter: 2024Q2

REPORT INFORMATION
  Report Type: Report from Study
  Country: DE (occurrence: DE)
  Receive Date: 20240503
  Receipt Date: 20240503
  Transmission Date: 20240715
  Serious: Yes (Other)
  Sender: FDA-Public Use
  Company Number: DE-ABBVIE-5743197

PATIENT
  Age: 50 Year
  Sex: Female
  Weight: 85 kg

DRUGS (2)
  1. SKYRIZI [Suspect]
     Active Substance: RISANKIZUMAB-RZAA
     Indication: Psoriasis
     Route: 058
     Dates: start: 20191016
  2. LEVOTHYROXINE SODIUM [Concomitant]
     Active Substance: LEVOTHYROXINE SODIUM
     Indication: Thyroidectomy
     Route: 048

REACTIONS (3)
  - Surgery [Recovered/Resolved]
  - Calcinosis [Recovering/Resolving]
  - Bursitis [Recovering/Resolving]

NARRATIVE: CASE EVENT DATE: 20240201
